FAERS Safety Report 14027588 (Version 2)
Quarter: 2017Q4

REPORT INFORMATION
  Report Type: Spontaneous
  Country: US (occurrence: US)
  Receive Date: 20170929
  Receipt Date: 20171004
  Transmission Date: 20180321
  Serious: No
  Sender: FDA-Public Use
  Company Number: US-PFIZER INC-2017418096

PATIENT
  Age: 73 Year
  Sex: Female

DRUGS (5)
  1. LYRICA [Suspect]
     Active Substance: PREGABALIN
     Indication: NEURALGIA
     Dosage: 75 MG, 2X/DAY(ONE IN THE MORNING OF 75 AND ONE AT NIGHT OF 75)
     Route: 048
  2. HYZAAR [Concomitant]
     Active Substance: HYDROCHLOROTHIAZIDE\LOSARTAN POTASSIUM
     Indication: BLOOD PRESSURE ABNORMAL
     Dosage: UNK, 1X/DAY (50/12)
  3. PANTOPRAZOLE [Concomitant]
     Active Substance: PANTOPRAZOLE
     Dosage: 40 MG, 1X/DAY (AT NIGHT)
  4. LYRICA [Suspect]
     Active Substance: PREGABALIN
     Indication: SHOULDER OPERATION
     Dosage: 150 MG, 1X/DAY (TWO 75 MG)
     Route: 048
  5. LYRICA [Suspect]
     Active Substance: PREGABALIN
     Dosage: 125 MG, 1X/DAY (75 MG IN THE MORNING, 50 MG AT NIGHT)
     Route: 048

REACTIONS (2)
  - Skin disorder [Unknown]
  - Weight increased [Unknown]
